FAERS Safety Report 13135608 (Version 1)
Quarter: 2017Q1

REPORT INFORMATION
  Report Type: Spontaneous
  Country: US (occurrence: US)
  Receive Date: 20170120
  Receipt Date: 20170120
  Transmission Date: 20170428
  Serious: Yes (Other)
  Sender: FDA-Public Use
  Company Number: US-SA-2017SA007722

PATIENT
  Age: 64 Year
  Sex: Male

DRUGS (11)
  1. AMARYL [Suspect]
     Active Substance: GLIMEPIRIDE
     Indication: PRODUCT USED FOR UNKNOWN INDICATION
     Route: 065
  2. ALBUTEROL. [Concomitant]
     Active Substance: ALBUTEROL
  3. PROPANOLOL [Concomitant]
     Active Substance: PROPRANOLOL HYDROCHLORIDE
  4. FUROSEMIDE. [Concomitant]
     Active Substance: FUROSEMIDE
  5. JAKAFI [Suspect]
     Active Substance: RUXOLITINIB
     Indication: MYELOFIBROSIS
     Route: 048
     Dates: start: 20160127
  6. SPIRONOLACTONE. [Concomitant]
     Active Substance: SPIRONOLACTONE
  7. GLIMEPIRIDE. [Concomitant]
     Active Substance: GLIMEPIRIDE
  8. DILANTIN [Concomitant]
     Active Substance: PHENYTOIN
  9. CLONAZEPAM. [Concomitant]
     Active Substance: CLONAZEPAM
  10. THYROGEN [Concomitant]
     Active Substance: THYROTROPIN ALFA
  11. INDERAL [Concomitant]
     Active Substance: PROPRANOLOL HYDROCHLORIDE

REACTIONS (9)
  - Oropharyngeal pain [Unknown]
  - Palpitations [Recovered/Resolved]
  - Wheezing [Recovering/Resolving]
  - Respiratory tract haemorrhage [Unknown]
  - Upper respiratory tract infection [Unknown]
  - Pain [Unknown]
  - Extrasystoles [Unknown]
  - Sputum discoloured [Unknown]
  - Cough [Unknown]

NARRATIVE: CASE EVENT DATE: 2016
